FAERS Safety Report 24267515 (Version 4)
Quarter: 2025Q2

REPORT INFORMATION
  Report Type: Report from Study
  Country: CA (occurrence: CA)
  Receive Date: 20240830
  Receipt Date: 20250618
  Transmission Date: 20250716
  Serious: Yes (Other)
  Sender: ROCHE
  Company Number: CA-002147023-NVSC2024CA173176

PATIENT
  Sex: Female

DRUGS (3)
  1. XOLAIR [Suspect]
     Active Substance: OMALIZUMAB
     Indication: Chronic spontaneous urticaria
     Dosage: 300 MG, OTHER (EVERY 4 WEEKS)
     Route: 058
     Dates: start: 20240402
  2. XOLAIR [Suspect]
     Active Substance: OMALIZUMAB
     Dosage: 300 MG, 4 WEEKS (STRENGTH 150 MG
     Route: 058
     Dates: start: 20151203, end: 20161207
  3. XOLAIR [Suspect]
     Active Substance: OMALIZUMAB
     Dosage: 300 MG, 4 WEEKS (STRENGTH 150 MG)
     Route: 058
     Dates: start: 20170620

REACTIONS (6)
  - Syncope [Recovered/Resolved]
  - Needle issue [Unknown]
  - Injection site pain [Recovered/Resolved]
  - Nausea [Recovered/Resolved]
  - Weight decreased [Unknown]
  - Fear of injection [Unknown]
